FAERS Safety Report 21411106 (Version 2)
Quarter: 2025Q1

REPORT INFORMATION
  Report Type: Spontaneous
  Country: IT (occurrence: IT)
  Receive Date: 20221005
  Receipt Date: 20250314
  Transmission Date: 20250408
  Serious: Yes (Other)
  Sender: ALEXION PHARMACEUTICALS
  Company Number: None

PATIENT
  Age: 64 Year

DRUGS (6)
  1. QTERN [Interacting]
     Active Substance: DAPAGLIFLOZIN\SAXAGLIPTIN HYDROCHLORIDE
     Route: 065
  2. IBRANCE [Suspect]
     Active Substance: PALBOCICLIB
  3. ASPIRIN DL-LYSINE [Interacting]
     Active Substance: ASPIRIN DL-LYSINE
     Route: 065
  4. BISOPROLOL FUMARATE [Interacting]
     Active Substance: BISOPROLOL FUMARATE
     Route: 065
  5. EZETIMIBE\ROSUVASTATIN CALCIUM [Interacting]
     Active Substance: EZETIMIBE\ROSUVASTATIN CALCIUM
     Route: 065
  6. FASLODEX [Concomitant]
     Active Substance: FULVESTRANT
     Route: 065

REACTIONS (1)
  - Neutropenia [Recovering/Resolving]
